FAERS Safety Report 9303479 (Version 1)
Quarter: 2013Q2

REPORT INFORMATION
  Report Type: Spontaneous
  Country: US (occurrence: US)
  Receive Date: 20130522
  Receipt Date: 20130522
  Transmission Date: 20140414
  Serious: Yes (Hospitalization, Other)
  Sender: FDA-Public Use
  Company Number: US-ASTRAZENECA-2013SE33868

PATIENT
  Age: 26 Year
  Sex: Female
  Weight: 45.8 kg

DRUGS (5)
  1. OMEPRAZOLE [Suspect]
     Indication: ULCER HAEMORRHAGE
     Route: 048
     Dates: start: 20130124
  2. OMEPRAZOLE [Suspect]
     Indication: OESOPHAGITIS
     Route: 048
     Dates: start: 20130124
  3. OMEPRAZOLE [Suspect]
     Indication: GASTRITIS
     Route: 048
     Dates: start: 20130124
  4. SUCRALFATE [Concomitant]
     Dosage: BID
  5. RANITIDINE [Concomitant]
     Dosage: DAILY

REACTIONS (2)
  - Chest pain [Unknown]
  - Abnormal loss of weight [Unknown]
